FAERS Safety Report 21054271 (Version 1)
Quarter: 2022Q3

REPORT INFORMATION
  Report Type: Spontaneous
  Country: US (occurrence: US)
  Receive Date: 20220707
  Receipt Date: 20220707
  Transmission Date: 20221026
  Serious: No
  Sender: FDA-Public Use
  Company Number: US-PFIZER INC-202200917147

PATIENT
  Age: 84 Year
  Sex: Female

DRUGS (1)
  1. BOSULIF [Suspect]
     Active Substance: BOSUTINIB MONOHYDRATE
     Dosage: 100MG ORAL. WEEK 1: TAKE 1 TABLET DAILY, WEEK 2: TAKE 2 TABLETS DAILY, WEEK 3 ONWARDS: TAKE 3 TABLET
     Route: 048
     Dates: start: 20220629

REACTIONS (3)
  - Nausea [Unknown]
  - Dysphagia [Unknown]
  - Dysuria [Unknown]
